FAERS Safety Report 6846901-6 (Version None)
Quarter: 2010Q3

REPORT INFORMATION
  Report Type: 
  Country: None (occurrence: None)
  Receive Date: 20100715
  Receipt Date: 20080215
  Transmission Date: 20110219
  Serious: No
  Sender: FDA-Public Use
  Company Number: US-PFIZER INC-2007079805

PATIENT
  Sex: Female
  Weight: 83.9 kg

DRUGS (5)
  1. CHANTIX [Suspect]
     Indication: SMOKING CESSATION THERAPY
     Route: 048
     Dates: start: 20070709, end: 20070901
  2. CYMBALTA [Concomitant]
     Indication: DEPRESSION
  3. CYMBALTA [Concomitant]
     Indication: PAIN
  4. DARVOCET [Concomitant]
     Indication: PAIN
  5. ELAVIL [Concomitant]

REACTIONS (5)
  - ANXIETY [None]
  - IRRITABILITY [None]
  - NERVOUSNESS [None]
  - NIGHTMARE [None]
  - TOOTH FRACTURE [None]
